FAERS Safety Report 7203845-8 (Version None)
Quarter: 2010Q4

REPORT INFORMATION
  Report Type: 
  Country: None (occurrence: None)
  Receive Date: 20101230
  Receipt Date: 20100916
  Transmission Date: 20110411
  Serious: Yes (Death, Hospitalization)
  Sender: FDA-Public Use
  Company Number: FR-CELGENEUS-056-21880-09020916

PATIENT
  Sex: Female

DRUGS (7)
  1. REVLIMID [Suspect]
     Indication: MULTIPLE MYELOMA
     Route: 048
     Dates: start: 20080516, end: 20081225
  2. CEFPODOXIME PROXETIL [Concomitant]
     Route: 065
     Dates: start: 20081223
  3. ZELITREX [Concomitant]
     Route: 065
  4. SPECIAFOLDINE [Concomitant]
     Route: 065
  5. ASPEGIC 1000 [Concomitant]
     Route: 065
  6. ESTREVA [Concomitant]
     Route: 065
  7. DISULONE [Concomitant]
     Route: 065

REACTIONS (2)
  - RHABDOMYOLYSIS [None]
  - SEPTIC SHOCK [None]
